FAERS Safety Report 8221731-1 (Version None)
Quarter: 2012Q1

REPORT INFORMATION
  Report Type: 
  Country: None (occurrence: None)
  Receive Date: 20120314
  Receipt Date: 20120307
  Transmission Date: 20120608
  Serious: Yes (Life-Threatening, Other)
  Sender: FDA-Public Use
  Company Number: DSA_48230_2011

PATIENT
  Sex: Male

DRUGS (2)
  1. XENAZINE [Suspect]
     Indication: HUNTINGTON'S DISEASE
     Dosage: DF ORAL 12.5 MG 5X/DAY ORAL
     Route: 048
     Dates: start: 20110101
  2. BUSPAR [Suspect]
     Indication: ANXIETY
     Dosage: 5 MG TID

REACTIONS (7)
  - ANXIETY [None]
  - DYSKINESIA [None]
  - INSOMNIA [None]
  - HEART RATE DECREASED [None]
  - MULTIPLE DRUG OVERDOSE [None]
  - SUICIDAL IDEATION [None]
  - HALLUCINATION, TACTILE [None]
